FAERS Safety Report 10029018 (Version 2)
Quarter: 2014Q2

REPORT INFORMATION
  Report Type: Spontaneous
  Country: JP (occurrence: JP)
  Receive Date: 20140321
  Receipt Date: 20140421
  Transmission Date: 20141212
  Serious: Yes (Death, Hospitalization, Other)
  Sender: FDA-Public Use
  Company Number: PHHY2014JP033226

PATIENT
  Age: 89 Year
  Sex: Female

DRUGS (2)
  1. VOLTAREN [Suspect]
     Indication: PROCEDURAL PAIN
     Dosage: 25 MG, UNK
     Route: 054
     Dates: start: 20140310, end: 20140310
  2. SEFMAZON [Suspect]
     Dosage: 2 G, UNK
     Dates: start: 20140310, end: 20140310

REACTIONS (11)
  - Respiratory arrest [Fatal]
  - Respiratory depression [Fatal]
  - Hypersensitivity [Fatal]
  - Amylase increased [Unknown]
  - Blood glucose decreased [Unknown]
  - Renal impairment [Unknown]
  - Hepatic function abnormal [Unknown]
  - Alanine aminotransferase increased [Unknown]
  - Blood lactate dehydrogenase increased [Unknown]
  - Aspartate aminotransferase increased [Unknown]
  - Blood potassium increased [Unknown]
